FAERS Safety Report 4608648-6 (Version None)
Quarter: 2005Q1

REPORT INFORMATION
  Report Type: 
  Country: None (occurrence: None)
  Receive Date: 20050315
  Receipt Date: 20050304
  Transmission Date: 20050727
  Serious: Yes (Hospitalization)
  Sender: FDA-Public Use
  Company Number: GBWYE483607MAR05

PATIENT
  Age: 67 Year
  Sex: Female

DRUGS (8)
  1. ENBREL [Suspect]
     Indication: ARTHRITIS
  2. DEXTROPOPOXYPHENE HYDROCHLORIDE [Concomitant]
     Indication: PAIN
     Dosage: 2 TABLETS AS REQUIRED
  3. OMEPRAZOLE [Concomitant]
     Indication: HIATUS HERNIA
  4. PREDNISOLONE [Concomitant]
     Indication: ARTHRITIS
     Route: 048
  5. LISINOPRIL [Concomitant]
     Indication: HYPERTENSION
  6. CLOPIDOGREL [Concomitant]
     Indication: TRANSIENT ISCHAEMIC ATTACK
  7. ALENDRONATE SODIUM [Concomitant]
     Indication: OSTEOPOROSIS
  8. ACETAMINOPHEN [Concomitant]

REACTIONS (2)
  - BLINDNESS [None]
  - HEADACHE [None]
